FAERS Safety Report 9751349 (Version 1)
Quarter: 2013Q4

REPORT INFORMATION
  Report Type: Spontaneous
  Country: US (occurrence: US)
  Receive Date: 20131212
  Receipt Date: 20131212
  Transmission Date: 20140711
  Serious: No
  Sender: FDA-Public Use
  Company Number: US-BIOGENIDEC-2013BI094137

PATIENT
  Age: 37 Year
  Sex: Female

DRUGS (4)
  1. TECFIDERA [Suspect]
     Indication: MULTIPLE SCLEROSIS
     Route: 048
     Dates: start: 20130610
  2. VITAMIN D3 [Concomitant]
  3. LEVOTHYROXINE SODIUM [Concomitant]
  4. CALCIUM 600 [Concomitant]

REACTIONS (1)
  - Flushing [Unknown]
